FAERS Safety Report 6227435-9 (Version None)
Quarter: 2009Q2

REPORT INFORMATION
  Report Type: 
  Country: None (occurrence: None)
  Receive Date: 20090612
  Receipt Date: 20090602
  Transmission Date: 20091009
  Serious: Yes (Hospitalization)
  Sender: FDA-Public Use
  Company Number: DK-WATSON-2009-04060

PATIENT
  Age: 49 Year
  Sex: Male

DRUGS (5)
  1. MONODOX [Suspect]
     Indication: SKIN INFECTION
     Dosage: 100 MG, BID
     Route: 048
  2. CLARITHROMYCIN [Suspect]
     Indication: SKIN INFECTION
     Dosage: 100 MG, BID
     Route: 048
  3. PREDNISOLONE (WATSON LABORATORIES) [Suspect]
     Indication: ACUTE FEBRILE NEUTROPHILIC DERMATOSIS
     Dosage: UNK
  4. RIFAMPICIN [Suspect]
     Indication: SKIN INFECTION
     Dosage: 600 MG, DAILY
     Route: 048
  5. ETHAMBUTOL HCL [Suspect]
     Indication: SKIN INFECTION
     Dosage: 1200 MG, DAILY
     Route: 048

REACTIONS (2)
  - HYPERCALCAEMIA [None]
  - RENAL FAILURE [None]
